FAERS Safety Report 8348061-1 (Version None)
Quarter: 2012Q2

REPORT INFORMATION
  Report Type: 
  Country: None (occurrence: None)
  Receive Date: 20120509
  Receipt Date: 20120430
  Transmission Date: 20120825
  Serious: Yes (Death, Other)
  Sender: FDA-Public Use
  Company Number: US-MILLENNIUM PHARMACEUTICALS, INC.-2012-03037

PATIENT

DRUGS (2)
  1. VELCADE [Suspect]
     Indication: TRANSPLANT REJECTION
  2. RITUXIMAB [Suspect]
     Indication: TRANSPLANT REJECTION

REACTIONS (3)
  - SEPSIS [None]
  - NEUTROPENIA [None]
  - CYTOMEGALOVIRUS INFECTION [None]
